FAERS Safety Report 9609304 (Version 2)
Quarter: 2013Q4

REPORT INFORMATION
  Report Type: Report from Study
  Country: NL (occurrence: NL)
  Receive Date: 20131009
  Receipt Date: 20131015
  Transmission Date: 20140711
  Serious: Yes (Death)
  Sender: FDA-Public Use
  Company Number: NL-ROCHE-1286298

PATIENT
  Sex: Male

DRUGS (3)
  1. PEGASYS [Suspect]
     Indication: HEPATITIS C
     Route: 058
  2. COPEGUS [Suspect]
     Indication: HEPATITIS C
     Route: 048
  3. INCIVO [Suspect]
     Indication: HEPATITIS C
     Route: 048

REACTIONS (1)
  - Death [Fatal]
